FAERS Safety Report 11110891 (Version 1)
Quarter: 2015Q2

REPORT INFORMATION
  Report Type: Report from Study
  Country: US (occurrence: US)
  Receive Date: 20150513
  Receipt Date: 20150513
  Transmission Date: 20150821
  Serious: Yes (Other)
  Sender: FDA-Public Use
  Company Number: US-BAYER-2015-031723

PATIENT
  Age: 59 Year
  Sex: Female

DRUGS (1)
  1. NEXAVAR [Suspect]
     Active Substance: SORAFENIB
     Indication: HEPATOCELLULAR CARCINOMA
     Dosage: 400 MG, BID
     Route: 048
     Dates: start: 20140306, end: 20150418

REACTIONS (6)
  - Balance disorder [Not Recovered/Not Resolved]
  - Hepatocellular carcinoma [None]
  - Muscular weakness [Not Recovered/Not Resolved]
  - Blood iron abnormal [None]
  - Blood potassium abnormal [None]
  - Blood calcium abnormal [None]

NARRATIVE: CASE EVENT DATE: 201403
